FAERS Safety Report 8819006 (Version 1)
Quarter: 2012Q4

REPORT INFORMATION
  Report Type: 
  Country: FR (occurrence: FR)
  Receive Date: 20121001
  Receipt Date: 20121001
  Transmission Date: 20130627
  Serious: Yes (Hospitalization, Other)
  Sender: FDA-Public Use
  Company Number: FR-GENZYME-200828820GPV

PATIENT
  Age: 55 Year
  Sex: Male
  Weight: 85 kg

DRUGS (11)
  1. CAMPATH [Suspect]
     Indication: CHRONIC LYMPHOCYTIC LEUKAEMIA
     Dosage: CYCLES
     Route: 058
     Dates: start: 20080310
  2. CAMPATH [Suspect]
     Dosage: 30 mg, qd
     Route: 058
     Dates: start: 20080804, end: 20080806
  3. FLUDARA [Suspect]
     Indication: CHRONIC LYMPHOCYTIC LEUKAEMIA
     Dosage: CYCLES, CYCLE 1
     Route: 048
     Dates: start: 20080310
  4. FLUDARA [Suspect]
     Dosage: 75 mg, qd
     Route: 048
     Dates: start: 20080804, end: 20080806
  5. ENDOXAN [Suspect]
     Indication: CHRONIC LYMPHOCYTIC LEUKAEMIA
     Dosage: CYCLES, CYCLE 1
     Route: 048
     Dates: start: 20080310
  6. ENDOXAN [Suspect]
     Dosage: 450 mg, qd
     Route: 048
     Dates: start: 20080804, end: 20080806
  7. ZELITREX [Concomitant]
     Indication: ANTIVIRAL PROPHYLAXIS
     Dosage: 500 mg, bid
     Route: 048
     Dates: start: 20080311
  8. PENTACARINAT [Concomitant]
     Indication: ANTIFUNGAL PROPHYLAXIS
     Dosage: UNK, UNK
     Route: 065
     Dates: start: 20080310
  9. PENTACARINAT [Concomitant]
     Dosage: 1inhalation/month
     Route: 065
     Dates: start: 20080708
  10. MOPRAL [Concomitant]
     Indication: PRODUCT USED FOR UNKNOWN INDICATION
     Dosage: UNK, UNK
     Route: 048
     Dates: start: 20080708
  11. BACTRIM [Concomitant]
     Indication: PRODUCT USED FOR UNKNOWN INDICATION
     Dosage: 1 DF, qd
     Route: 065
     Dates: start: 20080311, end: 20090708

REACTIONS (12)
  - Metabolic acidosis [Unknown]
  - Urinary tract infection [Unknown]
  - Hypokalaemia [Unknown]
  - Lymphadenopathy [Unknown]
  - Lymphopenia [Not Recovered/Not Resolved]
  - Leukopenia [Unknown]
  - Neutropenia [Not Recovered/Not Resolved]
  - Diarrhoea [Recovered/Resolved]
  - Diarrhoea [Recovered/Resolved]
  - Blood bilirubin increased [Recovered/Resolved]
  - Bilirubin conjugated increased [Not Recovered/Not Resolved]
  - Alanine aminotransferase increased [Unknown]
